FAERS Safety Report 7727141-5 (Version None)
Quarter: 2011Q3

REPORT INFORMATION
  Report Type: 
  Country: None (occurrence: None)
  Receive Date: 20110831
  Receipt Date: 20110810
  Transmission Date: 20111222
  Serious: Yes (Death)
  Sender: FDA-Public Use
  Company Number: 201111093

PATIENT
  Sex: Female

DRUGS (5)
  1. CLONIDINE [Concomitant]
  2. LIORESAL [Suspect]
     Indication: MUSCLE SPASTICITY
     Dosage: 208.84 MCG, DAILY, INTRATHECAL
     Route: 037
  3. DILAUDID [Concomitant]
  4. PRIALT [Concomitant]
  5. BUPIVICAINE [Concomitant]

REACTIONS (1)
  - MEDICAL DEVICE COMPLICATION [None]
